FAERS Safety Report 16565460 (Version 1)
Quarter: 2019Q3

REPORT INFORMATION
  Report Type: Spontaneous
  Country: CA (occurrence: CA)
  Receive Date: 20190712
  Receipt Date: 20190712
  Transmission Date: 20191004
  Serious: Yes (Hospitalization)
  Sender: FDA-Public Use
  Company Number: CA-HORIZON-RAV-0189-2019

PATIENT
  Age: 33 Year
  Sex: Female

DRUGS (11)
  1. AMMONUL IV [Concomitant]
  2. L-ARGININE [Concomitant]
     Active Substance: ARGININE
  3. RAVICTI [Suspect]
     Active Substance: GLYCEROL PHENYLBUTYRATE
     Indication: CARBAMOYL PHOSPHATE SYNTHETASE DEFICIENCY
     Dosage: 3.0 ML TID
     Dates: start: 20190211
  4. JANUVIA [Concomitant]
     Active Substance: SITAGLIPTIN PHOSPHATE
  5. JAMP FERROUS SULFATE [Concomitant]
     Active Substance: FERROUS SULFATE
  6. VENTOLIN HFA [Concomitant]
     Active Substance: ALBUTEROL SULFATE
  7. BENZOATE 333 [Concomitant]
     Dosage: 33 ML
  8. JAMP VITAMIN D [Concomitant]
  9. PNS LACTULOSE [Concomitant]
  10. APO-LEVETIRACETAM [Concomitant]
     Active Substance: LEVETIRACETAM
  11. CITRULLINE [Concomitant]
     Active Substance: CITRULLINE

REACTIONS (3)
  - Therapy cessation [Recovered/Resolved]
  - Ammonia increased [Recovered/Resolved]
  - Product supply issue [Recovered/Resolved]

NARRATIVE: CASE EVENT DATE: 20190611
